FAERS Safety Report 20801338 (Version 1)
Quarter: 2022Q2

REPORT INFORMATION
  Report Type: Spontaneous
  Country: DE (occurrence: DE)
  Receive Date: 20220509
  Receipt Date: 20220509
  Transmission Date: 20220720
  Serious: Yes (Other)
  Sender: FDA-Public Use
  Company Number: DE-ALKEM LABORATORIES LIMITED-DE-ALKEM-2022-02975

PATIENT
  Age: 50 Year
  Sex: Female

DRUGS (2)
  1. PREGABALIN [Suspect]
     Active Substance: PREGABALIN
     Indication: Epilepsy
     Dosage: 900 MILLIGRAM DAILY
     Route: 065
  2. PREGABALIN [Suspect]
     Active Substance: PREGABALIN
     Indication: Neuralgia

REACTIONS (2)
  - Drug dependence [Unknown]
  - Overdose [Unknown]
